FAERS Safety Report 7609238-3 (Version None)
Quarter: 2011Q3

REPORT INFORMATION
  Report Type: 
  Country: None (occurrence: None)
  Receive Date: 20110713
  Receipt Date: 20110713
  Transmission Date: 20111222
  Serious: No
  Sender: FDA-Public Use
  Company Number: None

PATIENT
  Age: 4 Year
  Sex: Male
  Weight: 14.5151 kg

DRUGS (1)
  1. SINGULAIR [Suspect]
     Indication: DYSPNOEA
     Dosage: 4MG DAILY PO
     Route: 048
     Dates: start: 20110620, end: 20110709

REACTIONS (3)
  - ANXIETY [None]
  - NIGHTMARE [None]
  - PANIC ATTACK [None]
